FAERS Safety Report 8899554 (Version 1)
Quarter: 2012Q4

REPORT INFORMATION
  Report Type: 
  Country: US (occurrence: US)
  Receive Date: 20121109
  Receipt Date: 20121109
  Transmission Date: 20130627
  Serious: Yes (Hospitalization)
  Sender: FDA-Public Use
  Company Number: US-PFIZER INC-2012278537

PATIENT
  Age: 27 Year
  Sex: Female

DRUGS (7)
  1. XANAX [Suspect]
     Indication: ANXIETY
     Dosage: UNK
     Route: 048
     Dates: start: 2011, end: 201206
  2. FOLIC ACID [Suspect]
     Indication: PREGNANCY
     Dosage: 1 mg, Daily
     Route: 048
     Dates: start: 2012
  3. FOLIC ACID [Suspect]
     Indication: SICKLE CELL DISEASE
  4. AMBIEN [Suspect]
     Indication: INSOMNIA
     Dosage: 10 mg, Daily
     Route: 048
     Dates: start: 2011
  5. ZANTAC [Suspect]
     Indication: ACID REFLUX (ESOPHAGEAL)
     Dosage: 150 mg, Daily
     Route: 048
     Dates: start: 2012
  6. PERCOCET [Suspect]
     Indication: CHRONIC PAIN
     Dosage: 10 mg, Daily
     Route: 048
     Dates: start: 2012
  7. PHENERGAN [Suspect]
     Indication: NAUSEA
     Dosage: 25 mg, 4x/day
     Dates: start: 2011

REACTIONS (2)
  - Dehydration [Unknown]
  - Incorrect drug administration duration [Unknown]
